FAERS Safety Report 5122243-4 (Version None)
Quarter: 2006Q4

REPORT INFORMATION
  Report Type: 
  Country: None (occurrence: None)
  Receive Date: 20061006
  Receipt Date: 20060929
  Transmission Date: 20070319
  Serious: Yes (Hospitalization)
  Sender: FDA-Public Use
  Company Number: PL-MERCK-0610POL00001

PATIENT

DRUGS (2)
  1. SINGULAIR [Suspect]
     Indication: ASTHMA
     Route: 065
  2. [THERAPY UNSPECIFIED] [Suspect]
     Route: 065

REACTIONS (2)
  - INFECTION [None]
  - TRANSAMINASES INCREASED [None]
